FAERS Safety Report 6656400-2 (Version None)
Quarter: 2010Q1

REPORT INFORMATION
  Report Type: 
  Country: None (occurrence: None)
  Receive Date: 20100329
  Receipt Date: 20100319
  Transmission Date: 20100710
  Serious: Yes (Other)
  Sender: FDA-Public Use
  Company Number: DE-WYE-G05039609

PATIENT
  Sex: Female

DRUGS (3)
  1. VENLAFAXINE HCL [Suspect]
     Indication: DEPRESSION
     Dosage: 150-225 MG PER DAY
     Route: 048
     Dates: start: 20030828
  2. PANTOPRAZOLE SODIUM [Concomitant]
     Indication: PROPHYLAXIS AGAINST GASTROINTESTINAL ULCER
     Dosage: ON DEMAND
     Route: 048
     Dates: start: 20040101
  3. CERAZETTE [Concomitant]
     Indication: ORAL CONTRACEPTION
     Route: 048

REACTIONS (1)
  - OSTEONECROSIS [None]
